FAERS Safety Report 6457273-3 (Version None)
Quarter: 2009Q4

REPORT INFORMATION
  Report Type: 
  Country: None (occurrence: None)
  Receive Date: 20091125
  Receipt Date: 20091119
  Transmission Date: 20100525
  Serious: Yes (Other)
  Sender: FDA-Public Use
  Company Number: GB-PFIZER INC-2009299919

PATIENT
  Age: 69 Year
  Sex: Male

DRUGS (6)
  1. HYDROCORTISONE AND HYDROCORTISONE ACETATE AND HYDROCORTISONE CIPIONATE [Suspect]
     Dosage: 1 UNK, 2X/DAY
     Route: 061
     Dates: start: 20090922
  2. DIPROBASE, UNSPECIFIED [Concomitant]
  3. EZETIMIBE [Concomitant]
  4. GLICLAZIDE [Concomitant]
  5. METFORMIN [Concomitant]
  6. PIZOTIFEN [Concomitant]

REACTIONS (1)
  - OEDEMA PERIPHERAL [None]
